FAERS Safety Report 4325356-X (Version None)
Quarter: 2004Q1

REPORT INFORMATION
  Report Type: 
  Country: None (occurrence: None)
  Receive Date: 20040324
  Receipt Date: 20040312
  Transmission Date: 20041129
  Serious: Yes (Death)
  Sender: FDA-Public Use
  Company Number: US-JNJFOC-20040303616

PATIENT
  Age: 69 Year
  Sex: Female
  Weight: 60.782 kg

DRUGS (14)
  1. INFLIXIMAB (INFLIXIMAB, RECOMBINANT) LYOPHILIZED POWDER [Suspect]
     Indication: RHEUMATOID ARTHRITIS
     Dosage: INTRAVENOUS
     Route: 042
     Dates: start: 20010801, end: 20010801
  2. INFLIXIMAB (INFLIXIMAB, RECOMBINANT) LYOPHILIZED POWDER [Suspect]
     Indication: RHEUMATOID ARTHRITIS
     Dosage: INTRAVENOUS
     Route: 042
     Dates: start: 20010214
  3. EVISTA [Concomitant]
  4. PROPRANOLOL [Concomitant]
  5. FOLIC ACID [Concomitant]
  6. MULTIVITAMIN (MULTIVITAMINS) [Concomitant]
  7. CALCIUM PLUS D (CALCIUM) [Concomitant]
  8. ASPIRIN [Concomitant]
  9. NEURONTIN [Concomitant]
  10. NEXIUM [Concomitant]
  11. VICODIN [Concomitant]
  12. AMITRIPTYLINE HCL [Concomitant]
  13. BENZONATATE (BENZONATATE) [Concomitant]
  14. FAMVIR [Concomitant]

REACTIONS (1)
  - DEATH [None]
